FAERS Safety Report 17497501 (Version 1)
Quarter: 2020Q1

REPORT INFORMATION
  Report Type: Spontaneous
  Country: PT (occurrence: PT)
  Receive Date: 20200304
  Receipt Date: 20200304
  Transmission Date: 20200409
  Serious: Yes (Other)
  Sender: FDA-Public Use
  Company Number: PT-MYLANLABS-2020M1022580

PATIENT
  Age: 40 Year
  Sex: Male

DRUGS (1)
  1. AZATHIOPRINE. [Suspect]
     Active Substance: AZATHIOPRINE
     Indication: CROHN^S DISEASE
     Dosage: UNK
     Route: 065

REACTIONS (4)
  - Noninfective sialoadenitis [Recovered/Resolved]
  - Dry mouth [Recovered/Resolved]
  - Salivary gland pain [Recovered/Resolved]
  - Malaise [Recovered/Resolved]
